FAERS Safety Report 20411213 (Version 2)
Quarter: 2024Q4

REPORT INFORMATION
  Report Type: Spontaneous
  Country: TW (occurrence: TW)
  Receive Date: 20220201
  Receipt Date: 20241230
  Transmission Date: 20250115
  Serious: Yes (Other)
  Sender: NOVARTIS
  Company Number: TW-NOVARTISPH-NVSC2022TW020729

PATIENT
  Sex: Male

DRUGS (5)
  1. PREDNISOLONE [Suspect]
     Active Substance: PREDNISOLONE
     Indication: Product used for unknown indication
     Dosage: 4 MG/M2, QD (40MG/M2/DA)
     Route: 065
  2. PREDNISOLONE [Suspect]
     Active Substance: PREDNISOLONE
     Dosage: 1 MG/KG, QD
     Route: 065
  3. CYCLOSPORINE [Suspect]
     Active Substance: CYCLOSPORINE
     Indication: Product used for unknown indication
     Dosage: 3 MG/KG, QD
     Route: 065
  4. ETOPOSIDE [Concomitant]
     Active Substance: ETOPOSIDE
     Indication: Product used for unknown indication
     Dosage: 150 MG/M2, QD
     Route: 065
  5. Immunoglobulin [Concomitant]
     Indication: Product used for unknown indication
     Dosage: 1 GRAM PER KILOGRAM, QD
     Route: 042

REACTIONS (2)
  - Haemophagocytic lymphohistiocytosis [Unknown]
  - Thrombocytopenia [Unknown]
